FAERS Safety Report 18121017 (Version 1)
Quarter: 2020Q3

REPORT INFORMATION
  Report Type: Report from Study
  Country: US (occurrence: US)
  Receive Date: 20200806
  Receipt Date: 20200806
  Transmission Date: 20201103
  Serious: Yes (Hospitalization)
  Sender: FDA-Public Use
  Company Number: US-ACTELION-A-US2019-192096

PATIENT
  Sex: Female

DRUGS (14)
  1. LISINOPRIL. [Concomitant]
     Active Substance: LISINOPRIL
  2. MONTELUKAST [Concomitant]
     Active Substance: MONTELUKAST SODIUM
  3. METFORMIN [Concomitant]
     Active Substance: METFORMIN HYDROCHLORIDE
  4. FUROSEMIDE. [Concomitant]
     Active Substance: FUROSEMIDE
  5. IPRATROPIUM [Concomitant]
     Active Substance: IPRATROPIUM
  6. LIVALO [Concomitant]
     Active Substance: PITAVASTATIN CALCIUM
  7. DILTIAZEM. [Concomitant]
     Active Substance: DILTIAZEM
  8. LANTUS [Concomitant]
     Active Substance: INSULIN GLARGINE
  9. SPIRIVA [Concomitant]
     Active Substance: TIOTROPIUM BROMIDE MONOHYDRATE
  10. SYMBICORT [Concomitant]
     Active Substance: BUDESONIDE\FORMOTEROL FUMARATE DIHYDRATE
  11. OPSUMIT [Suspect]
     Active Substance: MACITENTAN
     Indication: PULMONARY HYPERTENSION
     Dosage: 10 MG
     Route: 048
  12. ALENDRONATE [Concomitant]
     Active Substance: ALENDRONATE SODIUM
  13. VITAMIN D [Concomitant]
     Active Substance: VITAMIN D NOS
  14. XARELTO [Concomitant]
     Active Substance: RIVAROXABAN

REACTIONS (2)
  - Pulmonary arterial hypertension [Unknown]
  - Hospitalisation [Unknown]
